FAERS Safety Report 4748160-7 (Version None)
Quarter: 2005Q3

REPORT INFORMATION
  Report Type: 
  Country: None (occurrence: None)
  Receive Date: 20050818
  Receipt Date: 20041020
  Transmission Date: 20060218
  Serious: Yes (Other)
  Sender: FDA-Public Use
  Company Number: US-ROCHE-383990

PATIENT
  Age: 44 Year
  Sex: Female
  Weight: 116.2 kg

DRUGS (5)
  1. PEGASYS [Suspect]
     Route: 058
     Dates: start: 20040729
  2. PEGASYS [Suspect]
     Dosage: STRENGTH 135 MG.
     Route: 058
     Dates: start: 20050211, end: 20050623
  3. COPEGUS [Suspect]
     Dosage: 3 AM, 3 PM.
     Route: 048
     Dates: start: 20040729
  4. COPEGUS [Suspect]
     Route: 048
     Dates: end: 20050623
  5. LEXAPRO [Concomitant]
     Indication: DEPRESSION
     Route: 048

REACTIONS (28)
  - ABDOMINAL PAIN [None]
  - BACK PAIN [None]
  - BRONCHITIS [None]
  - CONTUSION [None]
  - DEPRESSION [None]
  - DIARRHOEA [None]
  - ERYTHEMA [None]
  - EXOSTOSIS [None]
  - FATIGUE [None]
  - FEELING ABNORMAL [None]
  - FLUSHING [None]
  - HAIR COLOUR CHANGES [None]
  - HAIR TEXTURE ABNORMAL [None]
  - HEPATITIS C [None]
  - HYPOTRICHOSIS [None]
  - INSOMNIA [None]
  - MUSCLE SPASMS [None]
  - MYALGIA [None]
  - NAUSEA [None]
  - PLATELET COUNT DECREASED [None]
  - PRURITUS [None]
  - RASH [None]
  - RASH PRURITIC [None]
  - SINUS CONGESTION [None]
  - SKIN ULCER [None]
  - SUICIDAL IDEATION [None]
  - TOOTH FRACTURE [None]
  - WEIGHT DECREASED [None]
